FAERS Safety Report 16929430 (Version 2)
Quarter: 2019Q4

REPORT INFORMATION
  Report Type: Report from Study
  Country: None (occurrence: US)
  Receive Date: 20191017
  Receipt Date: 20191114
  Transmission Date: 20200122
  Serious: Yes (Death, Other)
  Sender: FDA-Public Use
  Company Number: US-ABBVIE-19K-163-2967918-00

PATIENT
  Sex: Female

DRUGS (1)
  1. CREON [Suspect]
     Active Substance: PANCRELIPASE AMYLASE\PANCRELIPASE LIPASE\PANCRELIPASE PROTEASE
     Indication: PANCREATIC CARCINOMA
     Dosage: 2 CAPSULES WITH MEAL AND 1 CAPSULE WITH SNACK
     Route: 048
     Dates: start: 201905

REACTIONS (2)
  - Immunodeficiency [Fatal]
  - Diverticulitis [Fatal]

NARRATIVE: CASE EVENT DATE: 2019
